FAERS Safety Report 23616519 (Version 2)
Quarter: 2024Q2

REPORT INFORMATION
  Report Type: Spontaneous
  Country: DE (occurrence: DE)
  Receive Date: 20240311
  Receipt Date: 20240416
  Transmission Date: 20240716
  Serious: Yes (Hospitalization)
  Sender: FDA-Public Use
  Company Number: DE-GLAXOSMITHKLINE-DE2024028764

PATIENT

DRUGS (13)
  1. NUCALA [Suspect]
     Active Substance: MEPOLIZUMAB
     Indication: Asthma
     Dosage: 100 MG
     Dates: start: 20240228, end: 20240228
  2. SPIRIVA RESPIMAT [Concomitant]
     Active Substance: TIOTROPIUM BROMIDE
     Indication: Product used for unknown indication
     Dosage: 2.5 UG,2-0-2
  3. BUDESONIDE [Concomitant]
     Active Substance: BUDESONIDE
     Indication: Product used for unknown indication
     Dosage: UNK,0.5 MG/2 ML 1-0-1
  4. CETIRIZINE [Concomitant]
     Active Substance: CETIRIZINE HYDROCHLORIDE
     Indication: Product used for unknown indication
     Dosage: 10 MG,0-0-0-1
  5. ALBUTEROL [Concomitant]
     Active Substance: ALBUTEROL
     Indication: Product used for unknown indication
     Dosage: 5 MG/ML,AS NEEDED
  6. BUPROPION BETA [Concomitant]
     Indication: Product used for unknown indication
     Dosage: 300 MG,1-0-0
  7. AMITRIPTYLINE [Concomitant]
     Active Substance: AMITRIPTYLINE
     Indication: Product used for unknown indication
     Dosage: 50 MG,0-0-0-1
  8. ORTOTON FORTE [Concomitant]
     Indication: Product used for unknown indication
     Dosage: 1500 MG,AS NEEDED
  9. ACETAMINOPHEN\TRAMADOL [Concomitant]
     Active Substance: ACETAMINOPHEN\TRAMADOL
     Indication: Product used for unknown indication
     Dosage: UNK,37.5/325 MG AS NEEDED 1-0-1
  10. NARATRIPTAN [Concomitant]
     Active Substance: NARATRIPTAN HYDROCHLORIDE
     Indication: Product used for unknown indication
     Dosage: 2.5 MG AS NEEDED
  11. ERENUMAB [Concomitant]
     Active Substance: ERENUMAB
     Indication: Product used for unknown indication
     Dosage: 140 MG, MO
     Route: 058
  12. TRAZODONE [Concomitant]
     Active Substance: TRAZODONE HYDROCHLORIDE
     Indication: Product used for unknown indication
     Dosage: 100 MG, 00-0-1
  13. DROVELIS [Concomitant]
     Indication: Product used for unknown indication
     Dosage: UNK,3/14.2 MG 1-0-0

REACTIONS (1)
  - Acute vestibular syndrome [Recovering/Resolving]

NARRATIVE: CASE EVENT DATE: 20240228
